FAERS Safety Report 20185778 (Version 4)
Quarter: 2022Q2

REPORT INFORMATION
  Report Type: Report from Study
  Country: US (occurrence: US)
  Receive Date: 20211215
  Receipt Date: 20220604
  Transmission Date: 20220721
  Serious: Yes (Hospitalization)
  Sender: FDA-Public Use
  Company Number: US-NOVARTISTESTPH-NVSC2021US286074

PATIENT
  Age: 53 Year
  Sex: Female

DRUGS (1)
  1. ENTRESTO [Suspect]
     Active Substance: SACUBITRIL\VALSARTAN
     Indication: Product used for unknown indication
     Dosage: 1 DOSAGE FORM (24/26 MG)
     Route: 065
     Dates: start: 2018

REACTIONS (7)
  - COVID-19 pneumonia [Recovering/Resolving]
  - Blood creatinine abnormal [Recovering/Resolving]
  - Nasopharyngitis [Recovering/Resolving]
  - Fluid imbalance [Recovered/Resolved]
  - Hypotension [Recovered/Resolved]
  - Weight decreased [Unknown]
  - Gait disturbance [Recovering/Resolving]

NARRATIVE: CASE EVENT DATE: 20211001
